FAERS Safety Report 9699340 (Version 2)
Quarter: 2013Q4

REPORT INFORMATION
  Report Type: Spontaneous
  Country: US (occurrence: US)
  Receive Date: 20131120
  Receipt Date: 20131120
  Transmission Date: 20140711
  Serious: Yes (Hospitalization, Other)
  Sender: FDA-Public Use
  Company Number: US-GILEAD-2008-0015153

PATIENT
  Sex: Female

DRUGS (10)
  1. LETAIRIS [Suspect]
     Indication: PULMONARY ARTERIAL HYPERTENSION
     Route: 048
     Dates: start: 20071112, end: 20080114
  2. LETAIRIS [Suspect]
     Dates: start: 2007, end: 200711
  3. LASIX [Concomitant]
     Route: 048
     Dates: start: 20071116
  4. NORPACE CR [Concomitant]
     Route: 048
     Dates: start: 20071116
  5. ADVAIR [Concomitant]
     Route: 055
     Dates: start: 20071116
  6. ASPIRIN [Concomitant]
     Route: 048
     Dates: start: 20071116
  7. SUCRALFATE [Concomitant]
     Dosage: BEFORE MEALS AND AT BED TIME
     Route: 048
     Dates: start: 20071116
  8. OS-CAL + D [Concomitant]
     Route: 048
     Dates: start: 20071116
  9. FISH OIL [Concomitant]
     Route: 048
     Dates: start: 20071116
  10. OXYGEN [Concomitant]
     Route: 055

REACTIONS (2)
  - Local swelling [None]
  - Joint swelling [None]
